FAERS Safety Report 6710158-7 (Version None)
Quarter: 2010Q2

REPORT INFORMATION
  Report Type: 
  Country: None (occurrence: None)
  Receive Date: 20100504
  Receipt Date: 20100426
  Transmission Date: 20101027
  Serious: Yes (Hospitalization)
  Sender: FDA-Public Use
  Company Number: AU-BAYER-201023428GPV

PATIENT
  Age: 69 Year
  Sex: Male

DRUGS (8)
  1. SORAFENIB OR PLACEBO [Suspect]
     Indication: RENAL CELL CARCINOMA
     Route: 048
     Dates: start: 20100203, end: 20100211
  2. ASPIRIN [Concomitant]
     Route: 048
  3. GLICLAZIDE [Concomitant]
     Route: 048
  4. OMEPRAZOLE [Concomitant]
     Route: 048
  5. METOPROLOL [Concomitant]
     Route: 048
  6. PARACETAMOL [Concomitant]
  7. CELECOXIB [Concomitant]
  8. ACETAMINOPHEN AND CODEINE PHOSPHATE [Concomitant]
     Route: 048

REACTIONS (7)
  - FATIGUE [None]
  - FLANK PAIN [None]
  - INTESTINAL FISTULA [None]
  - NAUSEA [None]
  - NIGHT SWEATS [None]
  - RENAL DISORDER [None]
  - VOMITING [None]
